FAERS Safety Report 4480580-0 (Version None)
Quarter: 2004Q4

REPORT INFORMATION
  Report Type: 
  Country: None (occurrence: None)
  Receive Date: 20041019
  Receipt Date: 20041006
  Transmission Date: 20050328
  Serious: Yes (Hospitalization)
  Sender: FDA-Public Use
  Company Number: 2004AP03343

PATIENT
  Age: 79 Year
  Sex: Male

DRUGS (4)
  1. CASODEX [Suspect]
     Indication: PROSTATE CANCER
     Dosage: 80 MG DAILY PO
     Route: 048
     Dates: start: 20040201, end: 20040301
  2. CASODEX [Suspect]
     Indication: PROSTATE CANCER
     Dosage: 80 MG QOD PO
     Route: 048
     Dates: start: 20040301, end: 20040531
  3. TRANSAMIN [Concomitant]
  4. ADONA [Concomitant]

REACTIONS (4)
  - GASTROINTESTINAL DISORDER [None]
  - HAEMOPTYSIS [None]
  - LUNG CARCINOMA CELL TYPE UNSPECIFIED RECURRENT [None]
  - PLATELET COUNT DECREASED [None]
